FAERS Safety Report 16954329 (Version 1)
Quarter: 2019Q4

REPORT INFORMATION
  Report Type: Spontaneous
  Country: US (occurrence: US)
  Receive Date: 20191023
  Receipt Date: 20191023
  Transmission Date: 20200122
  Serious: No
  Sender: FDA-Public Use
  Company Number: US-ABBVIE-19S-163-2646187-00

PATIENT
  Sex: Female

DRUGS (1)
  1. LUPRON [Suspect]
     Active Substance: LEUPROLIDE ACETATE
     Indication: ENDOMETRIOSIS
     Route: 050

REACTIONS (10)
  - Musculoskeletal stiffness [Unknown]
  - Arthralgia [Unknown]
  - Therapy cessation [Unknown]
  - Pain [Unknown]
  - Eye contusion [Unknown]
  - Concussion [Unknown]
  - Fall [Unknown]
  - Syncope [Unknown]
  - Bedridden [Unknown]
  - Migraine [Unknown]
